FAERS Safety Report 10994484 (Version 2)
Quarter: 2015Q2

REPORT INFORMATION
  Report Type: Report from Study
  Country: IT (occurrence: IT)
  Receive Date: 20150407
  Receipt Date: 20150527
  Transmission Date: 20150821
  Serious: Yes (Hospitalization)
  Sender: FDA-Public Use
  Company Number: IT-CELGENE-083-21880-12083191

PATIENT
  Age: 75 Year
  Sex: Female

DRUGS (4)
  1. DEXAMETHASONE. [Concomitant]
     Active Substance: DEXAMETHASONE
     Indication: WALDENSTROM^S MACROGLOBULINAEMIA
     Route: 048
  2. FLUXUM [Concomitant]
     Indication: THROMBOSIS PROPHYLAXIS
     Route: 065
  3. CARDIOASPIRINE [Concomitant]
     Active Substance: ASPIRIN
     Indication: THROMBOSIS PROPHYLAXIS
     Route: 065
  4. REVLIMID [Suspect]
     Active Substance: LENALIDOMIDE
     Indication: WALDENSTROM^S MACROGLOBULINAEMIA
     Dosage: 10 MILLIGRAM
     Route: 048
     Dates: start: 20120518

REACTIONS (3)
  - Ischaemic stroke [Unknown]
  - Waldenstrom^s macroglobulinaemia [Unknown]
  - Hyperviscosity syndrome [Recovered/Resolved]

NARRATIVE: CASE EVENT DATE: 20120612
